FAERS Safety Report 6213150-4 (Version None)
Quarter: 2009Q2

REPORT INFORMATION
  Report Type: 
  Country: None (occurrence: None)
  Receive Date: 20090601
  Receipt Date: 20090601
  Transmission Date: 20091009
  Serious: Yes (Hospitalization)
  Sender: FDA-Public Use
  Company Number: None

PATIENT
  Age: 66 Year
  Sex: Male

DRUGS (2)
  1. ASPIRIN [Suspect]
     Indication: CARDIAC FAILURE CONGESTIVE
     Dosage: 1 TAB EVERY DAY PO
     Route: 048
     Dates: start: 19960125, end: 20090320
  2. ASPIRIN [Suspect]
     Indication: CARDIAC FAILURE CONGESTIVE
     Dosage: 1 TAB EVERY DAY PO
     Route: 048
     Dates: start: 20080506, end: 20090320

REACTIONS (2)
  - GASTRIC HAEMORRHAGE [None]
  - GASTRITIS EROSIVE [None]
